FAERS Safety Report 7489122-9 (Version None)
Quarter: 2011Q2

REPORT INFORMATION
  Report Type: 
  Country: None (occurrence: None)
  Receive Date: 20110518
  Receipt Date: 20110509
  Transmission Date: 20111010
  Serious: Yes (Other)
  Sender: FDA-Public Use
  Company Number: US-JNJFOC-20110504289

PATIENT
  Sex: Female

DRUGS (3)
  1. REBIF [Concomitant]
     Indication: PRODUCT USED FOR UNKNOWN INDICATION
     Route: 058
  2. REBIF [Concomitant]
     Route: 058
     Dates: start: 20101220
  3. MOTRIN [Suspect]
     Indication: PRODUCT USED FOR UNKNOWN INDICATION
     Route: 065

REACTIONS (4)
  - PAIN [None]
  - PETECHIAE [None]
  - FATIGUE [None]
  - COLITIS ISCHAEMIC [None]
